FAERS Safety Report 14799786 (Version 2)
Quarter: 2018Q2

REPORT INFORMATION
  Report Type: Spontaneous
  Country: DE (occurrence: DE)
  Receive Date: 20180424
  Receipt Date: 20180425
  Transmission Date: 20180711
  Serious: Yes (Hospitalization)
  Sender: FDA-Public Use
  Company Number: DE-JNJFOC-20180423226

PATIENT
  Age: 83 Year
  Sex: Female
  Weight: 55 kg

DRUGS (8)
  1. RAMIPRIL. [Concomitant]
     Active Substance: RAMIPRIL
     Dosage: 0.5-0-0-0
     Route: 048
  2. AMANTADINE HYDROCHLORIDE. [Suspect]
     Active Substance: AMANTADINE HYDROCHLORIDE
     Indication: PRODUCT USED FOR UNKNOWN INDICATION
     Dosage: 1-0-0-0.5
     Route: 048
  3. CINNARIZIN DIMENHYDRINAT [Concomitant]
     Dosage: 20/40 MG; 1-1-1-0
     Route: 048
  4. LEVOTHYROXINE SODIUM. [Concomitant]
     Active Substance: LEVOTHYROXINE SODIUM
     Dosage: 1-0-0-0
     Route: 048
  5. LEVOMEPROMAZINE [Suspect]
     Active Substance: LEVOMEPROMAZINE
     Indication: PRODUCT USED FOR UNKNOWN INDICATION
     Dosage: 0-0-0-1
     Route: 048
  6. RAMIPRIL. [Concomitant]
     Active Substance: RAMIPRIL
     Route: 048
  7. RISPERIDONE. [Suspect]
     Active Substance: RISPERIDONE
     Indication: PRODUCT USED FOR UNKNOWN INDICATION
     Dosage: 1-0-0-0
     Route: 048
  8. LEVOTHYROXINE SODIUM. [Concomitant]
     Active Substance: LEVOTHYROXINE SODIUM
     Route: 048

REACTIONS (11)
  - Electrocardiogram QT prolonged [Unknown]
  - General physical health deterioration [Unknown]
  - Atrioventricular block second degree [Unknown]
  - Fatigue [Unknown]
  - Fall [Unknown]
  - Weight decreased [Unknown]
  - Dehydration [Unknown]
  - Bradycardia [Unknown]
  - Musculoskeletal pain [Unknown]
  - Tremor [Unknown]
  - Dry skin [Unknown]
